FAERS Safety Report 4449140-1 (Version None)
Quarter: 2004Q3

REPORT INFORMATION
  Report Type: 
  Country: None (occurrence: None)
  Receive Date: 20040910
  Receipt Date: 20040827
  Transmission Date: 20050211
  Serious: Yes (Hospitalization)
  Sender: FDA-Public Use
  Company Number: 2004PK01456

PATIENT
  Age: 62 Year
  Sex: Male
  Weight: 60.3 kg

DRUGS (8)
  1. SEROQUEL [Suspect]
     Indication: SCHIZOPHRENIA
     Dosage: 1800 MG DAILY PO
     Route: 048
     Dates: start: 20010601, end: 20040822
  2. SEROQUEL [Suspect]
     Indication: SCHIZOPHRENIA
     Dosage: 14 G DAILY PO
     Route: 048
     Dates: start: 20040823, end: 20040823
  3. IMOVANE [Suspect]
     Indication: INSOMNIA
     Dosage: 7.5 MG DAILY PO
     Route: 048
     Dates: start: 20040201, end: 20040822
  4. IMOVANE [Suspect]
     Indication: INSOMNIA
     Dosage: 40 DF ONCE PO
     Route: 048
     Dates: start: 20040823, end: 20040823
  5. DAONIL [Concomitant]
  6. GLUCOPHAGE [Concomitant]
  7. CONCOR [Concomitant]
  8. SEROPRAM [Concomitant]

REACTIONS (7)
  - DRUG TOXICITY [None]
  - ELECTROCARDIOGRAM QT PROLONGED [None]
  - HYPOTENSION [None]
  - OVERDOSE [None]
  - SOMNOLENCE [None]
  - SUICIDE ATTEMPT [None]
  - TACHYCARDIA [None]
